FAERS Safety Report 9342033 (Version 2)
Quarter: 2013Q3

REPORT INFORMATION
  Report Type: Spontaneous
  Country: US (occurrence: US)
  Receive Date: 20130611
  Receipt Date: 20130709
  Transmission Date: 20140515
  Serious: Yes (Other)
  Sender: FDA-Public Use
  Company Number: US-PFIZER INC-2013173427

PATIENT
  Sex: 0

DRUGS (3)
  1. LIPITOR [Suspect]
     Dosage: UNK
  2. CALAN [Suspect]
     Dosage: UNK
  3. LYRICA [Suspect]
     Dosage: UNK

REACTIONS (1)
  - Neoplasm malignant [Unknown]
